FAERS Safety Report 8055621-4 (Version None)
Quarter: 2012Q1

REPORT INFORMATION
  Report Type: 
  Country: None (occurrence: None)
  Receive Date: 20120119
  Receipt Date: 20120113
  Transmission Date: 20120608
  Serious: Yes (Hospitalization, Other)
  Sender: FDA-Public Use
  Company Number: FR-JNJFOC-20111209446

PATIENT
  Sex: Female
  Weight: 35 kg

DRUGS (7)
  1. TRAMADOL HCL [Suspect]
     Indication: PRODUCT USED FOR UNKNOWN INDICATION
     Dosage: 100 MG TWICE A DAY
     Route: 048
     Dates: end: 20111026
  2. DURAGESIC-100 [Suspect]
     Dosage: AN UNKNOWN DOSE INITIATED ON AN UNKNOWN DATE
     Route: 062
     Dates: end: 20110922
  3. PRAZEPAM [Concomitant]
     Indication: PRODUCT USED FOR UNKNOWN INDICATION
     Dosage: 0.5 DOSE(S) ONCE A DAY
     Route: 048
  4. POLYETHYLENE GLYCOL [Concomitant]
     Indication: PRODUCT USED FOR UNKNOWN INDICATION
     Route: 048
  5. DURAGESIC-100 [Suspect]
     Indication: PRODUCT USED FOR UNKNOWN INDICATION
     Dosage: 75 UG/H (12.6 MG/31.5 CM?) ONCE IN 3 DAYS
     Route: 062
     Dates: start: 20110922, end: 20111026
  6. MORPHINE [Concomitant]
     Indication: PRODUCT USED FOR UNKNOWN INDICATION
     Route: 065
     Dates: start: 20060101
  7. DURAGESIC-100 [Suspect]
     Dosage: 50 UG/HR ONCE IN 3 DAYS
     Route: 062
     Dates: start: 20111026

REACTIONS (9)
  - DEMENTIA [None]
  - APHASIA [None]
  - URINARY RETENTION [None]
  - FAILURE TO THRIVE [None]
  - DECREASED APPETITE [None]
  - SOMNOLENCE [None]
  - DISTURBANCE IN ATTENTION [None]
  - DIET REFUSAL [None]
  - DRUG LEVEL INCREASED [None]
